FAERS Safety Report 26097437 (Version 1)
Quarter: 2025Q4

REPORT INFORMATION
  Report Type: Spontaneous
  Country: US (occurrence: US)
  Receive Date: 20251127
  Receipt Date: 20251127
  Transmission Date: 20260118
  Serious: Yes (Other)
  Sender: ELI LILLY AND COMPANY
  Company Number: US-ELI_LILLY_AND_COMPANY-US202511019336

PATIENT
  Age: 53 Year
  Sex: Female

DRUGS (56)
  1. MOUNJARO [Suspect]
     Active Substance: TIRZEPATIDE
     Indication: Type 2 diabetes mellitus
     Dosage: 2.5 MG, UNKNOWN
     Route: 058
     Dates: start: 202502
  2. MOUNJARO [Suspect]
     Active Substance: TIRZEPATIDE
     Indication: Type 2 diabetes mellitus
     Dosage: 2.5 MG, UNKNOWN
     Route: 058
     Dates: start: 202502
  3. MOUNJARO [Suspect]
     Active Substance: TIRZEPATIDE
     Indication: Cardiac disorder
  4. MOUNJARO [Suspect]
     Active Substance: TIRZEPATIDE
     Indication: Cardiac disorder
  5. MOUNJARO [Suspect]
     Active Substance: TIRZEPATIDE
     Indication: Hunger
  6. MOUNJARO [Suspect]
     Active Substance: TIRZEPATIDE
     Indication: Hunger
  7. MOUNJARO [Suspect]
     Active Substance: TIRZEPATIDE
     Indication: Weight control
  8. MOUNJARO [Suspect]
     Active Substance: TIRZEPATIDE
     Indication: Weight control
  9. MOUNJARO [Suspect]
     Active Substance: TIRZEPATIDE
     Indication: Type 2 diabetes mellitus
     Dosage: 5 MG, UNKNOWN
     Route: 058
  10. MOUNJARO [Suspect]
     Active Substance: TIRZEPATIDE
     Indication: Type 2 diabetes mellitus
     Dosage: 5 MG, UNKNOWN
     Route: 058
  11. MOUNJARO [Suspect]
     Active Substance: TIRZEPATIDE
     Indication: Type 2 diabetes mellitus
     Dosage: 5 MG, UNKNOWN
     Route: 058
  12. MOUNJARO [Suspect]
     Active Substance: TIRZEPATIDE
     Indication: Type 2 diabetes mellitus
     Dosage: 5 MG, UNKNOWN
     Route: 058
  13. MOUNJARO [Suspect]
     Active Substance: TIRZEPATIDE
     Indication: Hunger
  14. MOUNJARO [Suspect]
     Active Substance: TIRZEPATIDE
     Indication: Hunger
  15. MOUNJARO [Suspect]
     Active Substance: TIRZEPATIDE
     Indication: Hunger
  16. MOUNJARO [Suspect]
     Active Substance: TIRZEPATIDE
     Indication: Hunger
  17. MOUNJARO [Suspect]
     Active Substance: TIRZEPATIDE
     Indication: Weight control
  18. MOUNJARO [Suspect]
     Active Substance: TIRZEPATIDE
     Indication: Weight control
  19. MOUNJARO [Suspect]
     Active Substance: TIRZEPATIDE
     Indication: Weight control
  20. MOUNJARO [Suspect]
     Active Substance: TIRZEPATIDE
     Indication: Weight control
  21. MOUNJARO [Suspect]
     Active Substance: TIRZEPATIDE
     Indication: Cardiac disorder
  22. MOUNJARO [Suspect]
     Active Substance: TIRZEPATIDE
     Indication: Cardiac disorder
  23. MOUNJARO [Suspect]
     Active Substance: TIRZEPATIDE
     Indication: Cardiac disorder
  24. MOUNJARO [Suspect]
     Active Substance: TIRZEPATIDE
     Indication: Cardiac disorder
  25. MOUNJARO [Suspect]
     Active Substance: TIRZEPATIDE
     Indication: Type 2 diabetes mellitus
     Dosage: 7.5 MG, UNKNOWN
     Route: 065
  26. MOUNJARO [Suspect]
     Active Substance: TIRZEPATIDE
     Indication: Type 2 diabetes mellitus
     Dosage: 7.5 MG, UNKNOWN
     Route: 065
  27. MOUNJARO [Suspect]
     Active Substance: TIRZEPATIDE
     Indication: Type 2 diabetes mellitus
     Dosage: 7.5 MG, UNKNOWN
     Route: 065
  28. MOUNJARO [Suspect]
     Active Substance: TIRZEPATIDE
     Indication: Type 2 diabetes mellitus
     Dosage: 7.5 MG, UNKNOWN
     Route: 065
  29. MOUNJARO [Suspect]
     Active Substance: TIRZEPATIDE
     Indication: Hunger
  30. MOUNJARO [Suspect]
     Active Substance: TIRZEPATIDE
     Indication: Hunger
  31. MOUNJARO [Suspect]
     Active Substance: TIRZEPATIDE
     Indication: Hunger
  32. MOUNJARO [Suspect]
     Active Substance: TIRZEPATIDE
     Indication: Hunger
  33. MOUNJARO [Suspect]
     Active Substance: TIRZEPATIDE
     Indication: Weight control
  34. MOUNJARO [Suspect]
     Active Substance: TIRZEPATIDE
     Indication: Weight control
  35. MOUNJARO [Suspect]
     Active Substance: TIRZEPATIDE
     Indication: Weight control
  36. MOUNJARO [Suspect]
     Active Substance: TIRZEPATIDE
     Indication: Weight control
  37. MOUNJARO [Suspect]
     Active Substance: TIRZEPATIDE
     Indication: Cardiac disorder
  38. MOUNJARO [Suspect]
     Active Substance: TIRZEPATIDE
     Indication: Cardiac disorder
  39. MOUNJARO [Suspect]
     Active Substance: TIRZEPATIDE
     Indication: Cardiac disorder
  40. MOUNJARO [Suspect]
     Active Substance: TIRZEPATIDE
     Indication: Cardiac disorder
  41. MOUNJARO [Suspect]
     Active Substance: TIRZEPATIDE
     Indication: Type 2 diabetes mellitus
     Dosage: 10 MG, UNKNOWN
     Route: 058
  42. MOUNJARO [Suspect]
     Active Substance: TIRZEPATIDE
     Indication: Type 2 diabetes mellitus
     Dosage: 10 MG, UNKNOWN
     Route: 058
  43. MOUNJARO [Suspect]
     Active Substance: TIRZEPATIDE
     Indication: Type 2 diabetes mellitus
     Dosage: 10 MG, UNKNOWN
     Route: 058
  44. MOUNJARO [Suspect]
     Active Substance: TIRZEPATIDE
     Indication: Type 2 diabetes mellitus
     Dosage: 10 MG, UNKNOWN
     Route: 058
  45. MOUNJARO [Suspect]
     Active Substance: TIRZEPATIDE
     Indication: Hunger
  46. MOUNJARO [Suspect]
     Active Substance: TIRZEPATIDE
     Indication: Hunger
  47. MOUNJARO [Suspect]
     Active Substance: TIRZEPATIDE
     Indication: Hunger
  48. MOUNJARO [Suspect]
     Active Substance: TIRZEPATIDE
     Indication: Hunger
  49. MOUNJARO [Suspect]
     Active Substance: TIRZEPATIDE
     Indication: Weight control
  50. MOUNJARO [Suspect]
     Active Substance: TIRZEPATIDE
     Indication: Weight control
  51. MOUNJARO [Suspect]
     Active Substance: TIRZEPATIDE
     Indication: Weight control
  52. MOUNJARO [Suspect]
     Active Substance: TIRZEPATIDE
     Indication: Weight control
  53. MOUNJARO [Suspect]
     Active Substance: TIRZEPATIDE
     Indication: Cardiac disorder
  54. MOUNJARO [Suspect]
     Active Substance: TIRZEPATIDE
     Indication: Cardiac disorder
  55. MOUNJARO [Suspect]
     Active Substance: TIRZEPATIDE
     Indication: Cardiac disorder
  56. MOUNJARO [Suspect]
     Active Substance: TIRZEPATIDE
     Indication: Cardiac disorder

REACTIONS (6)
  - Cushing^s syndrome [Unknown]
  - Blood testosterone increased [Unknown]
  - Cortisol increased [Unknown]
  - Adrenomegaly [Unknown]
  - Weight increased [Unknown]
  - Drug ineffective [Unknown]
